FAERS Safety Report 7122480-3 (Version None)
Quarter: 2010Q4

REPORT INFORMATION
  Report Type: 
  Country: None (occurrence: None)
  Receive Date: 20101124
  Receipt Date: 20101119
  Transmission Date: 20110411
  Serious: Yes (Life-Threatening, Other)
  Sender: FDA-Public Use
  Company Number: JP-CELGENEUS-087-21880-10112252

PATIENT
  Sex: Female
  Weight: 58.7 kg

DRUGS (17)
  1. REVLIMID [Suspect]
     Indication: MULTIPLE MYELOMA
     Route: 048
     Dates: start: 20100904, end: 20100908
  2. REVLIMID [Suspect]
     Route: 048
     Dates: start: 20101005, end: 20101010
  3. REVLIMID [Suspect]
     Route: 048
     Dates: start: 20101019, end: 20101025
  4. REVLIMID [Suspect]
     Route: 048
     Dates: start: 20101026, end: 20101108
  5. DEXAMETHASONE [Suspect]
     Indication: MULTIPLE MYELOMA
     Route: 048
     Dates: start: 20100904, end: 20100908
  6. ASPIRIN [Concomitant]
     Indication: PROPHYLAXIS
     Route: 048
     Dates: start: 20100904, end: 20100908
  7. GASTER D [Concomitant]
     Indication: PROPHYLAXIS
     Route: 048
     Dates: start: 20100210
  8. MUCOSTA [Concomitant]
     Indication: PROPHYLAXIS
     Route: 048
     Dates: start: 20100210
  9. BAKTAR [Concomitant]
     Indication: PROPHYLAXIS
     Route: 048
     Dates: start: 20100210
  10. NORVASC [Concomitant]
     Indication: HYPERTENSION
     Route: 048
     Dates: start: 20100210
  11. PANTETHINE [Concomitant]
     Indication: PROPHYLAXIS
     Route: 048
     Dates: start: 20100210
  12. MAGLAX [Concomitant]
     Indication: PROPHYLAXIS
     Route: 048
     Dates: start: 20100210
  13. MORPHES [Concomitant]
     Indication: MULTIPLE MYELOMA
     Route: 048
     Dates: start: 20100927
  14. DALACIN [Concomitant]
     Indication: PROPHYLAXIS
     Route: 048
     Dates: start: 20101002, end: 20101010
  15. DALACIN [Concomitant]
     Indication: MEDIASTINAL ABSCESS
  16. AMOXICILLIN TRIHYDRATE [Concomitant]
     Indication: PROPHYLAXIS
     Route: 048
     Dates: start: 20101002, end: 20101010
  17. AMOXICILLIN TRIHYDRATE [Concomitant]
     Indication: MEDIASTINAL ABSCESS

REACTIONS (2)
  - DRUG ERUPTION [None]
  - MEDIASTINAL ABSCESS [None]
